FAERS Safety Report 8361411-5 (Version None)
Quarter: 2012Q2

REPORT INFORMATION
  Report Type: 
  Country: None (occurrence: None)
  Receive Date: 20120515
  Receipt Date: 20110823
  Transmission Date: 20120825
  Serious: No
  Sender: FDA-Public Use
  Company Number: US-ALEXION-A201101284

PATIENT
  Sex: Female

DRUGS (9)
  1. LEXAPRO [Concomitant]
     Dosage: 10 MG, QD
  2. MULTI-VITAMINS [Concomitant]
     Dosage: UNK
  3. SOLIRIS [Suspect]
     Dosage: 900 MG, Q2W
     Route: 042
     Dates: start: 20080101, end: 20110101
  4. KLONOPIN [Concomitant]
     Dosage: .5 MG, QD
  5. SOLIRIS [Suspect]
     Dosage: 1200 MG, Q2W
     Route: 042
     Dates: start: 20110101
  6. SINGULAIR [Concomitant]
     Dosage: 10 MG, QD
  7. SOLIRIS [Suspect]
     Indication: PAROXYSMAL NOCTURNAL HAEMOGLOBINURIA
     Dosage: 600 MG, QW
     Route: 042
     Dates: start: 20081124, end: 20080101
  8. FOLIC ACID [Concomitant]
     Dosage: 1200 UG, QD
  9. LOVENOX [Concomitant]
     Indication: THROMBOSIS PROPHYLAXIS
     Dosage: UNK

REACTIONS (1)
  - PREGNANCY [None]
